FAERS Safety Report 24761428 (Version 1)
Quarter: 2024Q4

REPORT INFORMATION
  Report Type: Spontaneous
  Country: US (occurrence: US)
  Receive Date: 20241220
  Receipt Date: 20241220
  Transmission Date: 20250114
  Serious: No
  Sender: MYLAN
  Company Number: US-MYLANLABS-2024M1109959

PATIENT

DRUGS (1)
  1. EMSAM [Suspect]
     Active Substance: SELEGILINE
     Indication: Product used for unknown indication
     Dosage: UNK
     Route: 062
     Dates: start: 2022

REACTIONS (1)
  - Rash [Unknown]
